FAERS Safety Report 11213017 (Version 1)
Quarter: 2015Q2

REPORT INFORMATION
  Report Type: Spontaneous
  Country: US (occurrence: US)
  Receive Date: 20150623
  Receipt Date: 20150623
  Transmission Date: 20150821
  Serious: No
  Sender: FDA-Public Use
  Company Number: US-009507513-1506USA010577

PATIENT
  Age: 27 Year
  Sex: Male

DRUGS (2)
  1. TRUSOPT [Suspect]
     Active Substance: DORZOLAMIDE HYDROCHLORIDE
     Indication: RETINOSCHISIS
     Dosage: THREE TIMES A DAY FOR 3 MONTHS
     Route: 047
  2. TRUSOPT [Suspect]
     Active Substance: DORZOLAMIDE HYDROCHLORIDE
     Dosage: THREE TIMES A DAY FOR 6 MONTHS
     Route: 047

REACTIONS (1)
  - Drug ineffective [Unknown]
